FAERS Safety Report 7623990-2 (Version None)
Quarter: 2011Q3

REPORT INFORMATION
  Report Type: 
  Country: None (occurrence: None)
  Receive Date: 20110720
  Receipt Date: 20110623
  Transmission Date: 20111222
  Serious: No
  Sender: FDA-Public Use
  Company Number: US-BRISTOL-MYERS SQUIBB COMPANY-15852700

PATIENT
  Age: 62 Year
  Sex: Male

DRUGS (1)
  1. YERVOY [Suspect]
     Dosage: 2ND DOSE OF YERVOY ON 08JUN2011,INFUSION RATE WAS DECREASED BY HALF.

REACTIONS (1)
  - INFUSION RELATED REACTION [None]
